FAERS Safety Report 5442351-8 (Version None)
Quarter: 2007Q3

REPORT INFORMATION
  Report Type: 
  Country: None (occurrence: None)
  Receive Date: 20070904
  Receipt Date: 20070824
  Transmission Date: 20080115
  Serious: Yes (Other)
  Sender: FDA-Public Use
  Company Number: US-PFIZER INC-2007002746

PATIENT
  Age: 51 Year
  Sex: Female

DRUGS (1)
  1. ZITHROMAX [Suspect]
     Indication: UPPER RESPIRATORY TRACT INFECTION

REACTIONS (2)
  - HEPATOCELLULAR DAMAGE [None]
  - LIVER TRANSPLANT [None]
